FAERS Safety Report 8443792-7 (Version None)
Quarter: 2012Q2

REPORT INFORMATION
  Report Type: 
  Country: None (occurrence: None)
  Receive Date: 20120323
  Receipt Date: 20111019
  Transmission Date: 20120825
  Serious: Yes (Other)
  Sender: FDA-Public Use
  Company Number: 163-21880-11052715

PATIENT
  Age: 43 Year
  Sex: Male
  Weight: 182.5 kg

DRUGS (18)
  1. PRAVASTATIN [Concomitant]
  2. HYDRALAZINE HCL [Concomitant]
  3. LANTUS [Concomitant]
  4. ARANESP [Concomitant]
  5. DEXAMETHASONE [Concomitant]
  6. CALCIUM CARBONATE [Concomitant]
  7. IRON (IRON) [Concomitant]
  8. LASIX [Concomitant]
  9. EPIVIR [Concomitant]
  10. REVLIMID [Suspect]
     Indication: MULTIPLE MYELOMA
     Dosage: 10 MG, QD X 21 DAYS, PO
     Route: 048
     Dates: start: 20110428, end: 20110502
  11. RAPAMUNE [Concomitant]
  12. PREDNISONE TAB [Concomitant]
  13. IMODIUM [Concomitant]
  14. ALLOPURINOL [Concomitant]
  15. ATENOLOL [Concomitant]
  16. PRAVACHOL [Concomitant]
  17. METOLAZONE [Concomitant]
  18. LISINOPRIL [Concomitant]

REACTIONS (3)
  - DYSPNOEA [None]
  - RASH GENERALISED [None]
  - PLATELET COUNT DECREASED [None]
